FAERS Safety Report 14245956 (Version 2)
Quarter: 2018Q2

REPORT INFORMATION
  Report Type: Spontaneous
  Country: FR (occurrence: FR)
  Receive Date: 20171204
  Receipt Date: 20180515
  Transmission Date: 20180711
  Serious: Yes (Other)
  Sender: FDA-Public Use
  Company Number: FR-MERCK KGAA-2036529

PATIENT
  Age: 59 Year
  Sex: Female

DRUGS (1)
  1. NOVOTHYROX [Suspect]
     Active Substance: LEVOTHYROXINE SODIUM
     Indication: PRODUCT USED FOR UNKNOWN INDICATION
     Dates: end: 201709

REACTIONS (31)
  - Suicidal ideation [None]
  - Fatigue [None]
  - Social avoidant behaviour [None]
  - Feeling abnormal [None]
  - Impaired driving ability [None]
  - Confusional state [None]
  - Dry eye [None]
  - Malaise [None]
  - Depression [None]
  - Palpitations [None]
  - Irritability [None]
  - Dizziness [None]
  - Amnesia [None]
  - Limb discomfort [None]
  - Disturbance in attention [None]
  - Loss of libido [None]
  - Apathy [None]
  - Eye pain [Not Recovered/Not Resolved]
  - Personal relationship issue [None]
  - Psychiatric symptom [None]
  - Memory impairment [None]
  - Vision blurred [Recovering/Resolving]
  - Anxiety [None]
  - Muscle spasms [Recovered/Resolved]
  - Stress [None]
  - General physical health deterioration [None]
  - Asthenia [None]
  - Vomiting [None]
  - Cholelithiasis [None]
  - Vertigo [Recovered/Resolved]
  - Dysstasia [None]

NARRATIVE: CASE EVENT DATE: 20170715
